FAERS Safety Report 4582224-6 (Version None)
Quarter: 2005Q1

REPORT INFORMATION
  Report Type: 
  Country: None (occurrence: None)
  Receive Date: 20050214
  Receipt Date: 20050201
  Transmission Date: 20050727
  Serious: Yes (Death, Hospitalization)
  Sender: FDA-Public Use
  Company Number: GXKR2005IT00533

PATIENT
  Age: 91 Year
  Sex: Female

DRUGS (7)
  1. TICLOPIDINE (NGX) (TICLOPIDINE) [Suspect]
     Indication: ANTICOAGULANT THERAPY
     Dosage: 250 MG, BID
  2. NIMODIPINE (NIMODIPINE) [Concomitant]
  3. NITRODERIVATIVES [Concomitant]
  4. DIURETICS (NO INGREDIENTS/SUBSTANCES) [Concomitant]
  5. HALOPERIDOL (HALOPERIDOL) [Concomitant]
  6. AMPICILLIN [Concomitant]
  7. SULBACTAM (SULBACTAM) [Concomitant]

REACTIONS (11)
  - BONE MARROW DEPRESSION [None]
  - CARDIOMEGALY [None]
  - ECCHYMOSIS [None]
  - HAEMATOCHEZIA [None]
  - HAEMATURIA [None]
  - PALLOR [None]
  - PANCYTOPENIA [None]
  - PETECHIAE [None]
  - PULMONARY OEDEMA [None]
  - SEPTIC SHOCK [None]
  - STAPHYLOCOCCAL SEPSIS [None]
